FAERS Safety Report 25723035 (Version 1)
Quarter: 2025Q3

REPORT INFORMATION
  Report Type: Spontaneous
  Country: EU (occurrence: EU)
  Receive Date: 20250825
  Receipt Date: 20250825
  Transmission Date: 20251020
  Serious: Yes (Other)
  Sender: SANDOZ
  Company Number: EU-002147023-PHHY2012FR028135

PATIENT
  Age: 56 Year
  Sex: Male

DRUGS (10)
  1. CYCLOSPORINE [Suspect]
     Active Substance: CYCLOSPORINE
     Indication: Heart and lung transplant
     Route: 065
  2. CYCLOSPORINE [Suspect]
     Active Substance: CYCLOSPORINE
     Indication: Prophylaxis against transplant rejection
  3. CASPOFUNGIN [Suspect]
     Active Substance: CASPOFUNGIN
     Dosage: 50 MG/DAY
     Route: 065
  4. CASPOFUNGIN [Suspect]
     Active Substance: CASPOFUNGIN
     Indication: Fungal infection
     Dosage: 70 MG AS LOADING DOSE FOLLOWED BY 50 MG /DAY
     Route: 065
  5. FLUCONAZOLE [Suspect]
     Active Substance: FLUCONAZOLE
     Indication: Candida infection
     Dosage: 100 MG/DAY
     Route: 065
  6. MYCOPHENOLATE MOFETIL [Suspect]
     Active Substance: MYCOPHENOLATE MOFETIL
     Indication: Heart and lung transplant
     Dosage: 2 G/DAY
     Route: 065
  7. MYCOPHENOLATE MOFETIL [Suspect]
     Active Substance: MYCOPHENOLATE MOFETIL
     Indication: Prophylaxis against transplant rejection
  8. PREDNISOLONE [Suspect]
     Active Substance: PREDNISOLONE
     Indication: Heart and lung transplant
     Dosage: 20 MG/DAY
     Route: 065
  9. PREDNISOLONE [Suspect]
     Active Substance: PREDNISOLONE
     Indication: Prophylaxis against transplant rejection
  10. VORICONAZOLE [Suspect]
     Active Substance: VORICONAZOLE
     Indication: Fungal infection
     Route: 065

REACTIONS (12)
  - Hallucination [Recovered/Resolved]
  - Acute pulmonary oedema [Recovered/Resolved]
  - Phaeohyphomycosis [Recovered/Resolved]
  - Alternaria infection [Recovered/Resolved]
  - Confusional state [Recovered/Resolved]
  - Skin necrosis [Recovered/Resolved]
  - Subcutaneous abscess [Recovered/Resolved]
  - Skin lesion [Recovered/Resolved]
  - Pneumonia bacterial [Recovered/Resolved]
  - Candida infection [Recovered/Resolved]
  - Endocarditis bacterial [Recovered/Resolved]
  - Mediastinitis [Recovered/Resolved]
